FAERS Safety Report 19376433 (Version 2)
Quarter: 2021Q2

REPORT INFORMATION
  Report Type: Spontaneous
  Country: ES (occurrence: ES)
  Receive Date: 20210605
  Receipt Date: 20210619
  Transmission Date: 20210717
  Serious: Yes (Hospitalization)
  Sender: FDA-Public Use
  Company Number: ES-AUROBINDO-AUR-APL-2021-022940

PATIENT
  Age: 2 Month
  Sex: Male
  Weight: 5.84 kg

DRUGS (6)
  1. TRUMENBA [Suspect]
     Active Substance: NEISSERIA MENINGITIDIS SEROGROUP B RECOMBINANT LP2086 A05 PROTEIN VARIANT ANTIGEN\NEISSERIA MENINGITIDIS SEROGROUP B RECOMBINANT LP2086 B01 PROTEIN VARIANT ANTIGEN
     Indication: IMMUNISATION
     Dosage: 1ST DOSE, 120 UG, SINGLE
     Route: 030
     Dates: start: 20210510, end: 20210510
  2. VITAMIN D [Concomitant]
     Active Substance: VITAMIN D NOS
     Indication: PROPHYLAXIS
     Dosage: 2 DROP, ONCE A DAY
     Route: 048
     Dates: start: 20210316
  3. PARACETAMOL POWDER FOR ORAL SOLUTION [Suspect]
     Active Substance: ACETAMINOPHEN
     Indication: PROPHYLAXIS
     Dosage: SINGLE
     Route: 048
     Dates: start: 20210510, end: 20210510
  4. NIMENRIX [Suspect]
     Active Substance: CLOSTRIDIUM TETANI TOXOID ANTIGEN (FORMALDEHYDE INACTIVATED)\MENINGOCOCCAL POLYSACCHARIDE VACCINE, GROUPS A, C, Y,W135 COMBINED
     Indication: IMMUNISATION
     Dosage: 1ST DOSE, SINGLE
     Route: 030
     Dates: start: 20210510, end: 20210510
  5. PREVNAR 13 [Suspect]
     Active Substance: PNEUMOCOCCAL 13-VALENT CONJUGATE VACCINE
     Indication: IMMUNISATION
     Dosage: TOATAL 1ST DOSE, SINGLE
     Route: 030
     Dates: start: 20210510, end: 20210510
  6. VAXELIS [Suspect]
     Active Substance: DIPHTHERIA AND TETANUS TOXOIDS AND ACELLULAR PERTUSSIS ADSORBED, INACTIVATED POLIOVIRUS AND HAEMOPHILUS B CONJUGATE (MPC) AND HEPATITIS B VIRUS VACCINE
     Indication: IMMUNISATION
     Dosage: UNKNOWN, SINGLE
     Route: 030
     Dates: start: 20210510, end: 20210510

REACTIONS (2)
  - Pyrexia [Recovered/Resolved]
  - Infection [Recovered/Resolved]

NARRATIVE: CASE EVENT DATE: 20210511
